FAERS Safety Report 9794579 (Version 2)
Quarter: 2014Q1

REPORT INFORMATION
  Report Type: Spontaneous
  Country: JP (occurrence: JP)
  Receive Date: 20140102
  Receipt Date: 20140102
  Transmission Date: 20141002
  Serious: Yes (Other)
  Sender: FDA-Public Use
  Company Number: JP-ABBVIE-13P-087-1130025-00

PATIENT
  Age: 48 Year
  Sex: Male
  Weight: 58 kg

DRUGS (8)
  1. ULTANE [Suspect]
     Indication: ANAESTHESIA PROCEDURE
     Dosage: 4%
     Route: 055
     Dates: start: 20130719, end: 20130719
  2. ULTANE [Suspect]
     Dosage: 2%
     Route: 055
     Dates: start: 20130719, end: 20130719
  3. DIPRIVAN [Suspect]
     Indication: SURGERY
     Route: 042
     Dates: start: 20130719, end: 20130719
  4. ANAPEINE [Suspect]
     Indication: SURGERY
     Route: 050
     Dates: start: 20130719, end: 20130719
  5. ANAPEINE [Suspect]
     Indication: ANAESTHESIA PROCEDURE
  6. ULTIVA [Suspect]
     Indication: SURGERY
     Route: 042
     Dates: start: 20130719, end: 20130719
  7. ULTIVA [Suspect]
     Indication: ANAESTHESIA PROCEDURE
  8. LIDOCAINE [Concomitant]
     Indication: SURGERY
     Route: 062
     Dates: start: 20130719, end: 20130719

REACTIONS (3)
  - Generalised erythema [Recovered/Resolved]
  - Hypotension [Recovered/Resolved]
  - Anaphylactic shock [Unknown]
